FAERS Safety Report 25471587 (Version 1)
Quarter: 2025Q2

REPORT INFORMATION
  Report Type: Spontaneous
  Country: DE (occurrence: DE)
  Receive Date: 20250624
  Receipt Date: 20250624
  Transmission Date: 20250716
  Serious: Yes (Hospitalization, Other)
  Sender: ACCORD
  Company Number: None

PATIENT
  Age: 58 Year
  Sex: Female
  Weight: 65 kg

DRUGS (1)
  1. OXALIPLATIN [Suspect]
     Active Substance: OXALIPLATIN
     Indication: Colorectal cancer
     Dates: start: 20250415, end: 20250526

REACTIONS (9)
  - Tremor [Unknown]
  - Unresponsive to stimuli [Unknown]
  - Cyanosis [Unknown]
  - Hyperhidrosis [Unknown]
  - Somnolence [Unknown]
  - Heart rate decreased [Unknown]
  - Hypotension [Unknown]
  - Malaise [Unknown]
  - Hypertension [Unknown]

NARRATIVE: CASE EVENT DATE: 20250526
